FAERS Safety Report 10250161 (Version 1)
Quarter: 2014Q2

REPORT INFORMATION
  Report Type: Spontaneous
  Country: US (occurrence: US)
  Receive Date: 20140620
  Receipt Date: 20140620
  Transmission Date: 20141212
  Serious: No
  Sender: FDA-Public Use
  Company Number: US-BRISTOL-MYERS SQUIBB COMPANY-20713459

PATIENT
  Age: 82 Year
  Sex: Female

DRUGS (7)
  1. ELIQUIS [Suspect]
     Indication: CEREBROVASCULAR ACCIDENT PROPHYLAXIS
  2. POTASSIUM [Concomitant]
  3. FUROSEMIDE [Concomitant]
     Dosage: FLUID PILL
  4. LISINOPRIL [Concomitant]
     Indication: BLOOD PRESSURE
  5. DILTIAZEM ER [Concomitant]
     Indication: CARDIAC DISORDER
  6. GABAPENTIN [Concomitant]
     Indication: NEURALGIA
  7. ALLOPURINOL [Concomitant]
     Indication: GOUT

REACTIONS (1)
  - Rash [Unknown]
